FAERS Safety Report 7617500-3 (Version None)
Quarter: 2011Q3

REPORT INFORMATION
  Report Type: 
  Country: None (occurrence: None)
  Receive Date: 20110718
  Receipt Date: 20110711
  Transmission Date: 20111222
  Serious: No
  Sender: FDA-Public Use
  Company Number: US-PFIZER INC-2011156352

PATIENT
  Sex: Female
  Weight: 57 kg

DRUGS (3)
  1. PREMARIN [Suspect]
     Indication: RASH
  2. TOPROL-XL [Concomitant]
     Dosage: UNK, 1X/DAY
  3. PREMARIN [Suspect]
     Indication: OFF LABEL USE
     Dosage: 0.625 MG, 2X/DAY
     Route: 067

REACTIONS (1)
  - DRUG EFFECT DECREASED [None]
